FAERS Safety Report 12886140 (Version 2)
Quarter: 2016Q4

REPORT INFORMATION
  Report Type: Report from Study
  Country: DE (occurrence: DE)
  Receive Date: 20161026
  Receipt Date: 20161115
  Transmission Date: 20170207
  Serious: Yes (Other)
  Sender: FDA-Public Use
  Company Number: PHHO2016DE015608

PATIENT
  Sex: Male
  Weight: 110 kg

DRUGS (1)
  1. CGP 57148B [Suspect]
     Active Substance: IMATINIB MESYLATE
     Indication: CHRONIC MYELOID LEUKAEMIA
     Dosage: 400 MG, BID
     Route: 048
     Dates: start: 20100909

REACTIONS (1)
  - Neovascular age-related macular degeneration [Recovering/Resolving]

NARRATIVE: CASE EVENT DATE: 201504
